FAERS Safety Report 23602733 (Version 5)
Quarter: 2024Q3

REPORT INFORMATION
  Report Type: Report from Study
  Country: US (occurrence: US)
  Receive Date: 20240306
  Receipt Date: 20240805
  Transmission Date: 20241017
  Serious: Yes (Other)
  Sender: TAKEDA
  Company Number: US-TAKEDA-2023TUS121931

PATIENT
  Age: 63 Year
  Sex: Male
  Weight: 103.1 kg

DRUGS (5)
  1. FRUQUINTINIB [Suspect]
     Active Substance: FRUQUINTINIB
     Indication: Colon cancer
     Dosage: 4 MILLIGRAM
     Route: 048
     Dates: start: 20231128
  2. FRUQUINTINIB [Suspect]
     Active Substance: FRUQUINTINIB
     Indication: Colon cancer metastatic
     Dosage: 5 MILLIGRAM
     Route: 048
     Dates: start: 20231204
  3. FRUQUINTINIB [Suspect]
     Active Substance: FRUQUINTINIB
     Dosage: 4 MILLIGRAM
     Route: 048
     Dates: start: 20240208
  4. FRUQUINTINIB [Suspect]
     Active Substance: FRUQUINTINIB
     Dosage: 3 MILLIGRAM
     Route: 048
     Dates: start: 20240405
  5. FRUQUINTINIB [Suspect]
     Active Substance: FRUQUINTINIB
     Dosage: 3 MILLIGRAM
     Route: 048

REACTIONS (18)
  - Oral pain [Unknown]
  - Fatigue [Recovering/Resolving]
  - Back pain [Not Recovered/Not Resolved]
  - Palmar-plantar erythrodysaesthesia syndrome [Recovered/Resolved]
  - Blood pressure increased [Unknown]
  - Arthralgia [Unknown]
  - Dysphonia [Unknown]
  - Cough [Recovered/Resolved]
  - Nasal congestion [Recovered/Resolved]
  - Pyrexia [Recovered/Resolved]
  - Laryngitis [Not Recovered/Not Resolved]
  - Skin exfoliation [Recovered/Resolved]
  - Skin fissures [Recovered/Resolved]
  - Dyspnoea [Recovered/Resolved]
  - Gastroenteritis viral [Not Recovered/Not Resolved]
  - Inappropriate schedule of product administration [Unknown]
  - Withdrawal syndrome [Not Recovered/Not Resolved]
  - Product dose omission issue [Recovered/Resolved]

NARRATIVE: CASE EVENT DATE: 20231205
